FAERS Safety Report 4546216-5 (Version None)
Quarter: 2005Q1

REPORT INFORMATION
  Report Type: 
  Country: None (occurrence: None)
  Receive Date: 20050106
  Receipt Date: 20041008
  Transmission Date: 20050727
  Serious: Yes (Hospitalization)
  Sender: FDA-Public Use
  Company Number: DE-ROCHE-382630

PATIENT
  Age: 67 Year
  Sex: Female

DRUGS (6)
  1. PEG-INTERFERON ALFA 2A (RO 25-8310) [Suspect]
     Route: 058
     Dates: start: 20040526
  2. PEG-INTERFERON ALFA 2A (RO 25-8310) [Suspect]
     Dosage: DOSE REDUCED.
     Route: 058
  3. RIBAVIRIN [Suspect]
     Dosage: TAKEN ONCE IN THE MORNING AND ONCE IN THE EVENING.
     Route: 048
     Dates: start: 20040526
  4. RIBAVIRIN [Suspect]
     Dosage: DOSE REDUCED.
     Route: 048
  5. BLINDED AMANTADINE [Suspect]
     Dosage: TWO TAKEN IN THE MORNING AND TWO TAKEN IN THE EVENING WITH NONE TAKEN AT NIGHT.
     Route: 048
     Dates: start: 20040526
  6. BLINDED AMANTADINE [Suspect]
     Dosage: DOSE REDUCED.
     Route: 048

REACTIONS (13)
  - AMNESIA [None]
  - ANXIETY [None]
  - HAEMATOCRIT DECREASED [None]
  - HAEMOGLOBIN DECREASED [None]
  - HYPOTONIA [None]
  - LIVER DISORDER [None]
  - MEAN CELL HAEMOGLOBIN DECREASED [None]
  - MEAN CELL VOLUME DECREASED [None]
  - PLATELET COUNT DECREASED [None]
  - SUPRAVENTRICULAR EXTRASYSTOLES [None]
  - SYNCOPE [None]
  - VENTRICULAR EXTRASYSTOLES [None]
  - WHITE BLOOD CELL COUNT DECREASED [None]
